FAERS Safety Report 24269751 (Version 1)
Quarter: 2024Q3

REPORT INFORMATION
  Report Type: Spontaneous
  Country: US (occurrence: US)
  Receive Date: 20240830
  Receipt Date: 20240830
  Transmission Date: 20241016
  Serious: Yes (Other)
  Sender: ENDO
  Company Number: ENDG23-06769

PATIENT
  Age: 60 Year
  Sex: Female

DRUGS (2)
  1. PREDNISONE [Suspect]
     Active Substance: PREDNISONE
     Indication: Drug hypersensitivity
     Dosage: UNK UNKNOWN, UNKNOWN (HEAVY DOSE)
     Route: 065
  2. REMICADE [Concomitant]
     Active Substance: INFLIXIMAB
     Indication: Rheumatoid arthritis
     Dosage: UNK UNKNOWN, UNKNOWN
     Route: 051

REACTIONS (1)
  - Spinal fracture [Unknown]
